FAERS Safety Report 6568874-6 (Version None)
Quarter: 2010Q1

REPORT INFORMATION
  Report Type: 
  Country: None (occurrence: None)
  Receive Date: 20100201
  Receipt Date: 20100201
  Transmission Date: 20100710
  Serious: No
  Sender: FDA-Public Use
  Company Number: None

PATIENT
  Sex: Female
  Weight: 7 kg

DRUGS (2)
  1. ZANTAC [Suspect]
     Indication: GASTROOESOPHAGEAL REFLUX DISEASE
     Dosage: .7ML 2X DAY LIQUID - ORAL
     Route: 048
     Dates: start: 20100125, end: 20100131
  2. ZYRTEC [Suspect]

REACTIONS (7)
  - CONDITION AGGRAVATED [None]
  - DRUG DISPENSING ERROR [None]
  - GASTROOESOPHAGEAL REFLUX DISEASE [None]
  - INSOMNIA [None]
  - IRRITABILITY [None]
  - MEDICATION ERROR [None]
  - VOMITING [None]
